FAERS Safety Report 6894895-X (Version None)
Quarter: 2010Q3

REPORT INFORMATION
  Report Type: 
  Country: None (occurrence: None)
  Receive Date: 20100802
  Receipt Date: 20100719
  Transmission Date: 20110219
  Serious: No
  Sender: FDA-Public Use
  Company Number: US-B.I. PHARMACEUTICALS,INC./RIDGEFIELD-2010-BP-08124BP

PATIENT
  Age: 84 Year
  Sex: Male

DRUGS (9)
  1. MICARDIS HCT [Suspect]
     Indication: HYPERTENSION
     Route: 048
     Dates: start: 20070101
  2. ZETIA [Concomitant]
     Indication: BLOOD CHOLESTEROL INCREASED
  3. TRICOR [Concomitant]
     Indication: BLOOD CHOLESTEROL INCREASED
  4. SINGULAIR [Concomitant]
     Indication: ASTHMA
  5. SINGULAIR [Concomitant]
     Indication: CHRONIC OBSTRUCTIVE PULMONARY DISEASE
  6. ADVAIR DISKUS 100/50 [Concomitant]
     Indication: ASTHMA
  7. ADVAIR DISKUS 100/50 [Concomitant]
     Indication: CHRONIC OBSTRUCTIVE PULMONARY DISEASE
  8. PROVENTIL [Concomitant]
     Indication: ASTHMA
  9. PROVENTIL [Concomitant]
     Indication: CHRONIC OBSTRUCTIVE PULMONARY DISEASE

REACTIONS (3)
  - DIZZINESS [None]
  - FEELING ABNORMAL [None]
  - RESTLESSNESS [None]
